FAERS Safety Report 9201203 (Version 2)
Quarter: 2013Q3

REPORT INFORMATION
  Report Type: Spontaneous
  Country: DE (occurrence: DE)
  Receive Date: 20130401
  Receipt Date: 20130709
  Transmission Date: 20140515
  Serious: Yes (Other)
  Sender: FDA-Public Use
  Company Number: PHHY2013DE030712

PATIENT
  Sex: Male
  Weight: 70 kg

DRUGS (10)
  1. EXJADE [Suspect]
     Indication: MYELODYSPLASTIC SYNDROME
     Dosage: 1500 MG PER DAY
     Route: 048
     Dates: start: 200908
  2. EXJADE [Suspect]
     Dosage: UNK UKN, UNK
     Route: 048
  3. EXJADE [Suspect]
     Dosage: UNK UKN, UNK
     Route: 048
     Dates: start: 201302, end: 201304
  4. EXJADE [Suspect]
     Dosage: 1500 MG PER DAY
     Dates: start: 201305
  5. PANTOZOL [Concomitant]
     Indication: GASTRITIS
     Dosage: 40 MG, QD
     Route: 048
  6. MINIRIN//DESMOPRESSIN [Concomitant]
     Dosage: 0.1 MG, QD
  7. METOCLOPRAMIDE [Concomitant]
     Dosage: 3X20
     Route: 048
  8. REVLIMID [Concomitant]
     Dosage: 10MG/D D1, 21, 29
     Dates: start: 201004, end: 20100708
  9. REVLIMID [Concomitant]
     Dosage: 10MG/D D1, 21, 29
     Dates: start: 20110806
  10. REVLIMID [Concomitant]
     Dosage: 10MG/D D1, 21, 29
     Dates: start: 20110904

REACTIONS (17)
  - Thrombocytopenia [Unknown]
  - Skin ulcer [Recovering/Resolving]
  - Stomatitis [Recovering/Resolving]
  - Fungal test positive [Recovered/Resolved]
  - Rash [Unknown]
  - Aphthous stomatitis [Unknown]
  - Folliculitis [Recovering/Resolving]
  - Reflux gastritis [Unknown]
  - Decreased appetite [Unknown]
  - Barrett^s oesophagus [Unknown]
  - Sebaceous gland infection [Unknown]
  - Respiratory tract infection [Unknown]
  - Leukopenia [Unknown]
  - Hiatus hernia [Unknown]
  - Oedema peripheral [Unknown]
  - Paronychia [Unknown]
  - Wrong technique in drug usage process [Unknown]
